FAERS Safety Report 18881774 (Version 2)
Quarter: 2021Q1

REPORT INFORMATION
  Report Type: Spontaneous
  Country: CL (occurrence: CL)
  Receive Date: 20210212
  Receipt Date: 20210222
  Transmission Date: 20210420
  Serious: Yes (Hospitalization, Other)
  Sender: FDA-Public Use
  Company Number: CL-AMGEN-CHLSP2021022463

PATIENT
  Age: 34 Year
  Sex: Female

DRUGS (3)
  1. CELEBRA [Concomitant]
     Active Substance: CELECOXIB
     Dosage: UNK (IF NECESSARY)
  2. ENBREL [Suspect]
     Active Substance: ETANERCEPT
     Indication: RHEUMATOID ARTHRITIS
     Dosage: 50 MILLIGRAM
     Route: 065
     Dates: start: 20190916, end: 202001
  3. TRAMADOL. [Concomitant]
     Active Substance: TRAMADOL
     Dosage: UNK (IF NECESSARY)

REACTIONS (3)
  - Uveitis [Recovered/Resolved]
  - Retinal detachment [Recovered/Resolved]
  - Eye inflammation [Recovered/Resolved]

NARRATIVE: CASE EVENT DATE: 202001
